FAERS Safety Report 4883373-5 (Version None)
Quarter: 2006Q1

REPORT INFORMATION
  Report Type: 
  Country: None (occurrence: None)
  Receive Date: 20060118
  Receipt Date: 20051128
  Transmission Date: 20060701
  Serious: Yes (Hospitalization)
  Sender: FDA-Public Use
  Company Number: 2005GB02317

PATIENT
  Age: 50 Year
  Sex: Male

DRUGS (8)
  1. ATENOLOL [Suspect]
     Route: 065
  2. HUMIRA [Concomitant]
     Route: 065
     Dates: start: 20050401, end: 20050803
  3. SULFASALAZINE [Concomitant]
     Route: 065
  4. LANSOPRAZOLE [Concomitant]
     Route: 065
  5. PROCHLORPERAZINE [Concomitant]
     Route: 065
  6. ROFECOXIB [Concomitant]
     Route: 065
  7. WARFARIN [Concomitant]
     Route: 065
  8. FERROUS SULFATE TAB [Concomitant]
     Route: 065

REACTIONS (2)
  - ARTHRITIS INFECTIVE [None]
  - DRUG INEFFECTIVE [None]
